FAERS Safety Report 7298410-0 (Version None)
Quarter: 2011Q1

REPORT INFORMATION
  Report Type: 
  Country: None (occurrence: None)
  Receive Date: 20110217
  Receipt Date: 20110208
  Transmission Date: 20110831
  Serious: Yes (Hospitalization)
  Sender: FDA-Public Use
  Company Number: IN-SANOFI-AVENTIS-2011SA008033

PATIENT
  Age: 16 Year
  Sex: Female

DRUGS (1)
  1. LEFLUNOMIDE [Suspect]
     Route: 065

REACTIONS (14)
  - DYSARTHRIA [None]
  - HYPOTHYROIDISM [None]
  - EOSINOPHILIA [None]
  - RASH [None]
  - WEIGHT INCREASED [None]
  - HYPOREFLEXIA [None]
  - SWELLING FACE [None]
  - NAIL DISORDER [None]
  - DRUG RASH WITH EOSINOPHILIA AND SYSTEMIC SYMPTOMS [None]
  - PYREXIA [None]
  - LIVER FUNCTION TEST ABNORMAL [None]
  - OEDEMA [None]
  - OEDEMA PERIPHERAL [None]
  - DRY SKIN [None]
